FAERS Safety Report 10132255 (Version 1)
Quarter: 2014Q2

REPORT INFORMATION
  Report Type: Spontaneous
  Country: US (occurrence: US)
  Receive Date: 20140428
  Receipt Date: 20140428
  Transmission Date: 20141212
  Serious: Yes (Other)
  Sender: FDA-Public Use
  Company Number: US-NOVOPROD-407565

PATIENT
  Age: 67 Year
  Sex: Male

DRUGS (8)
  1. NOVOLOG [Suspect]
     Indication: TYPE 2 DIABETES MELLITUS
     Dosage: UNKNOWN
     Route: 065
     Dates: start: 20110111, end: 20110322
  2. LEVEMIR [Suspect]
     Indication: TYPE 2 DIABETES MELLITUS
     Dosage: UNKNOWN
     Route: 065
     Dates: start: 20110713, end: 20110729
  3. LANTUS [Suspect]
     Indication: TYPE 2 DIABETES MELLITUS
     Dosage: UNKNOWN
     Route: 065
     Dates: start: 20110111, end: 20110322
  4. LANTUS [Suspect]
     Dosage: DOSE INCREASED
     Route: 065
     Dates: start: 20110509, end: 20110701
  5. HUMULIN [Suspect]
     Indication: TYPE 2 DIABETES MELLITUS
     Dosage: 70/30
     Route: 065
     Dates: start: 20110802, end: 20110803
  6. METFORMIN [Concomitant]
     Indication: TYPE 2 DIABETES MELLITUS
     Dosage: UNKNOWN
     Route: 065
  7. RAMIPRIL [Concomitant]
     Dosage: UNKNOWN
     Route: 065
  8. ALISKIREN [Concomitant]
     Dosage: UNKNOWN
     Route: 065

REACTIONS (1)
  - Seronegative arthritis [Recovered/Resolved]
